FAERS Safety Report 10979251 (Version 3)
Quarter: 2015Q2

REPORT INFORMATION
  Report Type: Spontaneous
  Country: US (occurrence: US)
  Receive Date: 20150402
  Receipt Date: 20150427
  Transmission Date: 20150821
  Serious: Yes (Other)
  Sender: FDA-Public Use
  Company Number: US-TEVA-552454USA

PATIENT
  Age: 63 Year
  Sex: Female

DRUGS (2)
  1. COPAXONE [Suspect]
     Active Substance: GLATIRAMER ACETATE
     Route: 065
  2. COPAXONE [Suspect]
     Active Substance: GLATIRAMER ACETATE
     Indication: MULTIPLE SCLEROSIS
     Route: 065

REACTIONS (3)
  - Inappropriate schedule of drug administration [Unknown]
  - Therapy change [Unknown]
  - Optic neuritis [Unknown]
